FAERS Safety Report 5117428-7 (Version None)
Quarter: 2006Q3

REPORT INFORMATION
  Report Type: 
  Country: None (occurrence: None)
  Receive Date: 20060929
  Receipt Date: 20060919
  Transmission Date: 20061208
  Serious: Yes (Hospitalization, Other)
  Sender: FDA-Public Use
  Company Number: US-JNJFOC-20060806594

PATIENT
  Sex: Male
  Weight: 146.06 kg

DRUGS (5)
  1. REMICADE [Suspect]
     Route: 042
  2. REMICADE [Suspect]
     Indication: PSORIASIS
     Dosage: SEVERAL YEARS
     Route: 042
  3. PREVACID [Concomitant]
  4. MOTRIN [Concomitant]
     Indication: PYREXIA
  5. MOTRIN [Concomitant]
     Indication: ARTHRALGIA

REACTIONS (2)
  - PNEUMONIA [None]
  - PYOTHORAX [None]
